FAERS Safety Report 8712735 (Version 4)
Quarter: 2012Q4

REPORT INFORMATION
  Report Type: 
  Country: SE (occurrence: SE)
  Receive Date: 20120808
  Receipt Date: 20121211
  Transmission Date: 20130627
  Serious: Yes (Death, Other)
  Sender: FDA-Public Use
  Company Number: SE-AMGEN-SWESP2012048894

PATIENT
  Age: 11 Year
  Sex: Male

DRUGS (7)
  1. NEUPOGEN [Suspect]
     Indication: INFANTILE GENETIC AGRANULOCYTOSIS
     Dosage: 50 mug/kg, 0.5 ml 2 times (approximately 50 microgram/kg/day
     Route: 058
     Dates: end: 20070930
  2. BUSULPHAN [Concomitant]
     Dosage: 16 mg/kg, UNK
  3. CYCLOPHOSPHAMIDE [Concomitant]
     Dosage: 120 mg/kg, UNK
  4. MELPHALAN [Concomitant]
     Dosage: 140 mg/m2, UNK
  5. CYCLOSPORINE [Concomitant]
     Indication: PROPHYLAXIS AGAINST GRAFT VERSUS HOST DISEASE
     Dosage: UNK
  6. PREDNISOLONE [Concomitant]
     Indication: PROPHYLAXIS AGAINST GRAFT VERSUS HOST DISEASE
     Dosage: UNK
  7. BACTRIM [Concomitant]
     Dosage: UNK

REACTIONS (6)
  - Sepsis [Fatal]
  - Bone marrow failure [Fatal]
  - Graft versus host disease [Fatal]
  - Leukaemia [Unknown]
  - Myelodysplastic syndrome [Unknown]
  - Drug resistance [Unknown]
